FAERS Safety Report 7641596-6 (Version None)
Quarter: 2011Q3

REPORT INFORMATION
  Report Type: 
  Country: None (occurrence: None)
  Receive Date: 20110728
  Receipt Date: 20110718
  Transmission Date: 20111222
  Serious: Yes (Other)
  Sender: FDA-Public Use
  Company Number: JP-B.I. PHARMACEUTICALS,INC./RIDGEFIELD-2011-DE-04257GD

PATIENT
  Age: 60 Year
  Sex: Male

DRUGS (7)
  1. ENTACAPONE [Concomitant]
     Indication: PARKINSON'S DISEASE
     Dosage: 400 MG
  2. SEREGILINE [Concomitant]
     Indication: PARKINSON'S DISEASE
     Dosage: 5 MG
  3. PERGOLIDE [Concomitant]
     Indication: PARKINSON'S DISEASE
     Dosage: 250 MCG
  4. PRAMIPEXOLE DIHYDROCHLORIDE [Suspect]
     Indication: PARKINSON'S DISEASE
     Dosage: INCREASED TO 3 MG DAILY 9 MONTHS PRIOR
  5. CARBIDOPA + LEVODOPA [Concomitant]
     Dosage: 500MG/50MG
  6. CARBIDOPA + LEVODOPA [Concomitant]
     Indication: PARKINSON'S DISEASE
     Dosage: 400MG/40MG
  7. CABERGOLINE [Concomitant]
     Indication: PARKINSON'S DISEASE
     Dosage: 1 MG

REACTIONS (1)
  - INAPPROPRIATE ANTIDIURETIC HORMONE SECRETION [None]
